FAERS Safety Report 7372673-5 (Version None)
Quarter: 2011Q1

REPORT INFORMATION
  Report Type: 
  Country: None (occurrence: None)
  Receive Date: 20110324
  Receipt Date: 20101007
  Transmission Date: 20110831
  Serious: Yes (Life-Threatening, Other)
  Sender: FDA-Public Use
  Company Number: US-BAYER-200941159NA

PATIENT
  Sex: Female
  Weight: 65.909 kg

DRUGS (16)
  1. PULMICORT [Concomitant]
     Indication: PRODUCT USED FOR UNKNOWN INDICATION
     Dates: start: 20070101
  2. NOVOLOG [Concomitant]
     Indication: PAIN
     Dates: start: 20020101
  3. LANTUS [Concomitant]
     Indication: PAIN
     Dates: start: 20020101
  4. INSULIN [Concomitant]
     Indication: BLOOD GLUCOSE INCREASED
     Route: 041
     Dates: start: 20090215
  5. UNCODEABLE ^UNCLASSIFIABLE^ [Concomitant]
     Indication: PRODUCT USED FOR UNKNOWN INDICATION
     Route: 055
     Dates: start: 20070101
  6. PERCOCET [Concomitant]
     Indication: PAIN
     Dates: start: 20090218
  7. ORTHO TRI-CYCLEN [Suspect]
     Indication: MENSTRUATION IRREGULAR
     Dates: start: 20090211, end: 20090215
  8. CEPHALOSPORINS AND RELATED SUBSTANCES [Concomitant]
     Indication: COUGH
  9. SALINE SOLUTIONS [Concomitant]
     Indication: PRODUCT USED FOR UNKNOWN INDICATION
     Route: 042
     Dates: start: 20090215
  10. INSULIN [Concomitant]
  11. ULTRAM [Concomitant]
     Indication: PAIN
     Dates: start: 20090218
  12. YAZ [Suspect]
     Indication: BLOOD GLUCOSE INCREASED
     Dosage: 1 DF (DAILY DOSE), QD, ORAL
     Route: 048
     Dates: start: 20080918, end: 20090210
  13. CLINDAMYCIN [Concomitant]
     Indication: POST PROCEDURAL HAEMORRHAGE
     Dates: start: 20080601, end: 20080601
  14. POTASSIUM CHLORIDE [Concomitant]
     Indication: PRODUCT USED FOR UNKNOWN INDICATION
     Dates: start: 20090216
  15. LASIX [Concomitant]
     Indication: FLUID IMBALANCE
     Dates: start: 20090216
  16. BLOOD AND RELATED PRODUCTS [Concomitant]
     Indication: POST PROCEDURAL HAEMORRHAGE

REACTIONS (12)
  - ASPHYXIA [None]
  - RENAL FAILURE ACUTE [None]
  - COUGH [None]
  - DIZZINESS [None]
  - OXYGEN SATURATION DECREASED [None]
  - CHEST PAIN [None]
  - DYSPNOEA [None]
  - CARDIAC ARREST [None]
  - PANCREATITIS [None]
  - HEPATIC FUNCTION ABNORMAL [None]
  - PULMONARY ARTERY THROMBOSIS [None]
  - PAIN IN EXTREMITY [None]
